FAERS Safety Report 11857517 (Version 2)
Quarter: 2016Q1

REPORT INFORMATION
  Report Type: Not Available
  Country: IT (occurrence: IT)
  Receive Date: 20151221
  Receipt Date: 20160202
  Transmission Date: 20160526
  Serious: Yes (Hospitalization)
  Sender: FDA-Public Use
  Company Number: IT-MUNDIPHARMA DS AND PHARMACOVIGILANCE-GBR-2015-0032873

PATIENT
  Age: 79 Year
  Sex: Female

DRUGS (9)
  1. PALEXIA [Concomitant]
     Active Substance: TAPENTADOL HYDROCHLORIDE
     Dosage: 100 MG, UNK
  2. PANTOPRAZOLE [Concomitant]
     Active Substance: PANTOPRAZOLE SODIUM
     Dosage: 20 MG, UNK
     Route: 048
  3. TARGIN COMPRESSA A RILASCIO PROLUNGATO CONTIENE [Suspect]
     Active Substance: NALOXONE HYDROCHLORIDE\OXYCODONE HYDROCHLORIDE
     Indication: SCIATICA
     Dosage: 10MG/5MG, BID
     Route: 048
     Dates: start: 20150519, end: 20150608
  4. BETAHISTINE DIHYDROCHLORIDE [Concomitant]
     Active Substance: BETAHISTINE
  5. LYRICA [Concomitant]
     Active Substance: PREGABALIN
     Dosage: 75 MG, UNK
     Route: 048
  6. PRELECTAL [Concomitant]
     Dosage: 6.25 MG, ORAL
  7. TAPAZOLE [Concomitant]
     Active Substance: METHIMAZOLE
     Route: 048
  8. BENTELAN [Concomitant]
     Active Substance: BETAMETHASONE SODIUM PHOSPHATE
  9. NICETILE [Concomitant]
     Active Substance: ACETYLCARNITINE HYDROCHLORIDE

REACTIONS (2)
  - Nausea [Recovering/Resolving]
  - Faecaloma [Recovering/Resolving]

NARRATIVE: CASE EVENT DATE: 20150608
